FAERS Safety Report 18619860 (Version 3)
Quarter: 2021Q1

REPORT INFORMATION
  Report Type: Report from Study
  Country: US (occurrence: US)
  Receive Date: 20201215
  Receipt Date: 20210226
  Transmission Date: 20210419
  Serious: No
  Sender: FDA-Public Use
  Company Number: NVSC2020US309673

PATIENT
  Sex: Female

DRUGS (1)
  1. OMNITROPE [Suspect]
     Active Substance: SOMATROPIN
     Indication: IN VITRO FERTILISATION
     Dosage: UNK
     Route: 065

REACTIONS (3)
  - Product packaging quantity issue [Unknown]
  - Product dose omission issue [Unknown]
  - No adverse event [Unknown]
